FAERS Safety Report 9240027 (Version 2)
Quarter: 2013Q4

REPORT INFORMATION
  Report Type: Spontaneous
  Country: US (occurrence: US)
  Receive Date: 20130418
  Receipt Date: 20131104
  Transmission Date: 20140711
  Serious: Yes (Death, Hospitalization, Other)
  Sender: FDA-Public Use
  Company Number: US-009507513-1304USA008478

PATIENT
  Sex: Male
  Weight: 136.5 kg

DRUGS (2)
  1. JANUVIA [Suspect]
     Indication: TYPE 2 DIABETES MELLITUS
     Dosage: 100 MG, QD
     Route: 048
     Dates: start: 20120416, end: 201205
  2. METFORMIN [Concomitant]
     Indication: TYPE 2 DIABETES MELLITUS

REACTIONS (28)
  - Pancreatic carcinoma stage III [Fatal]
  - Metastases to liver [Unknown]
  - Pancreatectomy [Unknown]
  - Splenectomy [Unknown]
  - Sepsis [Unknown]
  - Lactic acidosis [Unknown]
  - Hip arthroplasty [Unknown]
  - Pulmonary embolism [Unknown]
  - Pancreatitis [Not Recovered/Not Resolved]
  - Diabetes mellitus [Unknown]
  - Malnutrition [Unknown]
  - Radiotherapy [Unknown]
  - Bladder diverticulum [Unknown]
  - Seroma [Unknown]
  - Postoperative abscess [Unknown]
  - Pain [Unknown]
  - Neurolysis [Unknown]
  - Abdominal hernia repair [Unknown]
  - Pleural effusion [Unknown]
  - Thrombosis mesenteric vessel [Unknown]
  - Portal vein thrombosis [Unknown]
  - Azotaemia [Unknown]
  - Benign prostatic hyperplasia [Unknown]
  - Oedema peripheral [Unknown]
  - Coagulopathy [Unknown]
  - Panic attack [Unknown]
  - Depression [Unknown]
  - Back pain [Unknown]
